FAERS Safety Report 5546885-7 (Version None)
Quarter: 2007Q4

REPORT INFORMATION
  Report Type: 
  Country: None (occurrence: None)
  Receive Date: 20071207
  Receipt Date: 20071207
  Transmission Date: 20080405
  Serious: Yes (Other)
  Sender: FDA-Public Use
  Company Number: None

PATIENT
  Age: 42 Year
  Sex: Male
  Weight: 98.8842 kg

DRUGS (1)
  1. PREZISTA [Suspect]
     Indication: HIV INFECTION
     Dosage: 600MG TWICE DAILY PO
     Route: 048
     Dates: start: 20071102, end: 20071109

REACTIONS (2)
  - GASTROOESOPHAGEAL REFLUX DISEASE [None]
  - TACHYCARDIA [None]
